FAERS Safety Report 15042647 (Version 2)
Quarter: 2018Q3

REPORT INFORMATION
  Report Type: Spontaneous
  Country: NL (occurrence: NL)
  Receive Date: 20180621
  Receipt Date: 20180817
  Transmission Date: 20181010
  Serious: Yes (Life-Threatening, Hospitalization)
  Sender: FDA-Public Use
  Company Number: NL-TEVA-2018-NL-909914

PATIENT
  Age: 64 Year
  Sex: Female

DRUGS (9)
  1. DENOSUMAB 60MG [Concomitant]
     Active Substance: DENOSUMAB
     Route: 065
  2. PREDNISOLON 7.5MG [Concomitant]
     Dosage: 7.5 MILLIGRAM DAILY;  SINCE 23?10?2015
     Dates: start: 20151023
  3. ACENOCOUMAROL 1MG [Concomitant]
     Active Substance: ACENOCOUMAROL
     Dosage: 1 MILLIGRAM DAILY; SINCE 26?01?2016
     Route: 065
     Dates: start: 20160125
  4. NEOTIGASON [Suspect]
     Active Substance: ACITRETIN
     Indication: ECZEMA
     Dosage: 10 MILLIGRAM DAILY;
     Route: 065
     Dates: start: 20180321, end: 20180404
  5. PANTOPRAZOL 40G [Concomitant]
     Dosage: 40 MILLIGRAM DAILY;
     Route: 065
  6. LEVOTHYROXINE 0.75MCG [Concomitant]
     Dosage: .75 MICROGRAM DAILY;
     Route: 065
  7. COLECALCIFEROL DRANK 25.000IE/ML [Concomitant]
     Route: 065
  8. COLECALCIFEROL DRANK 25.000IE/ML [Concomitant]
     Route: 065
  9. HYDROXCHLOROQUINE 200MG [Concomitant]
     Dosage: SINCE 04?09?2015
     Dates: start: 20150904

REACTIONS (4)
  - Pancreatitis acute [Recovered/Resolved]
  - Abdominal pain [Recovered/Resolved]
  - Nausea [Recovered/Resolved]
  - Asthenia [Recovered/Resolved]

NARRATIVE: CASE EVENT DATE: 20180414
